FAERS Safety Report 15604680 (Version 1)
Quarter: 2018Q4

REPORT INFORMATION
  Report Type: Spontaneous
  Country: US (occurrence: US)
  Receive Date: 20181109
  Receipt Date: 20181109
  Transmission Date: 20190205
  Serious: Yes (Disabling, Other)
  Sender: FDA-Public Use
  Company Number: None

PATIENT
  Age: 61 Year
  Sex: Female
  Weight: 98.1 kg

DRUGS (7)
  1. ATENNOLOL [Concomitant]
  2. FISH OIL [Concomitant]
     Active Substance: FISH OIL
  3. VITAMEN B12 [Concomitant]
  4. GLIPIZIDE (GLUCOTROL XL EQ) 5 MG TBER-RXBV8042658 [Suspect]
     Active Substance: GLIPIZIDE
     Indication: DIABETES MELLITUS
     Dosage: ?          QUANTITY:90 TABLET(S);?
     Route: 048
     Dates: start: 20180726, end: 20181109
  5. HYDROCHORITIZIDE [Concomitant]
  6. MILK THISLE [Concomitant]
  7. VITAMEN E [Concomitant]

REACTIONS (8)
  - Pruritus [None]
  - Drug ineffective [None]
  - Drug intolerance [None]
  - Blister [None]
  - Vulvovaginal swelling [None]
  - Dry mouth [None]
  - Vulvovaginal dryness [None]
  - Suspected product contamination [None]

NARRATIVE: CASE EVENT DATE: 20180726
